FAERS Safety Report 9342578 (Version 1)
Quarter: 2013Q2

REPORT INFORMATION
  Report Type: Spontaneous
  Country: US (occurrence: US)
  Receive Date: 20130611
  Receipt Date: 20130611
  Transmission Date: 20140414
  Serious: Yes (Other)
  Sender: FDA-Public Use
  Company Number: US-BRISTOL-MYERS SQUIBB COMPANY-18994293

PATIENT
  Age: 76 Year
  Sex: Male

DRUGS (10)
  1. BYDUREON [Suspect]
     Dates: start: 20120307
  2. CARDURA [Concomitant]
  3. ZETIA [Concomitant]
  4. PROSCAR [Concomitant]
  5. GLIPIZIDE [Concomitant]
  6. MOBIC [Concomitant]
  7. METFORMIN [Concomitant]
  8. NIACIN [Concomitant]
  9. FISH OIL [Concomitant]
  10. MESTINON [Concomitant]

REACTIONS (1)
  - Pancreatic carcinoma metastatic [Unknown]
